FAERS Safety Report 9884075 (Version 1)
Quarter: 2014Q1

REPORT INFORMATION
  Report Type: Spontaneous
  Country: US (occurrence: None)
  Receive Date: 20140207
  Receipt Date: 20140207
  Transmission Date: 20141002
  Serious: Yes (Disabling)
  Sender: FDA-Public Use
  Company Number: None

PATIENT
  Age: 37 Year
  Sex: Female
  Weight: 57 kg

DRUGS (1)
  1. NORFLOXACIN [Suspect]
     Indication: URINARY TRACT INFECTION
     Dosage: SEVEN TABLETS  ONCE DAILY  TAKEN BY MOUTH
     Route: 048

REACTIONS (12)
  - Respiratory disorder [None]
  - Hypoaesthesia [None]
  - Hypoaesthesia [None]
  - Paraesthesia [None]
  - Paraesthesia [None]
  - Fatigue [None]
  - Muscular weakness [None]
  - Pain in extremity [None]
  - Tendon pain [None]
  - Arthralgia [None]
  - Pelvic pain [None]
  - Muscle spasms [None]
